FAERS Safety Report 8302778-3 (Version None)
Quarter: 2012Q2

REPORT INFORMATION
  Report Type: 
  Country: None (occurrence: None)
  Receive Date: 20120420
  Receipt Date: 20110814
  Transmission Date: 20120825
  Serious: No
  Sender: FDA-Public Use
  Company Number: US-PFIZER INC-K201100966

PATIENT
  Sex: Female

DRUGS (1)
  1. TAPAZOLE [Suspect]
     Dosage: UNK
     Route: 048
     Dates: start: 20110701, end: 20110801

REACTIONS (3)
  - PYREXIA [None]
  - DYSPEPSIA [None]
  - HEADACHE [None]
